FAERS Safety Report 8793081 (Version 1)
Quarter: 2012Q4

REPORT INFORMATION
  Report Type: 
  Country: FR (occurrence: FR)
  Receive Date: 20120917
  Receipt Date: 20120917
  Transmission Date: 20130627
  Serious: Yes (Death, Other)
  Sender: FDA-Public Use
  Company Number: FR-CELGENEUS-056-21880-10070688

PATIENT

DRUGS (2)
  1. REVLIMID [Suspect]
     Indication: MULTIPLE MYELOMA
     Dosage: 25 Milligram
     Route: 048
     Dates: start: 200609
  2. REVLIMID [Suspect]
     Dosage: 10mg daily for the first 3 months, increased to 15mg if tolerated.
     Route: 048

REACTIONS (31)
  - Death [Fatal]
  - Herpes zoster [Unknown]
  - Ischaemic stroke [Unknown]
  - Neutropenia [Unknown]
  - Pulmonary embolism [Unknown]
  - Hypersensitivity [Unknown]
  - Thrombocytopenia [Unknown]
  - Deep vein thrombosis [Unknown]
  - Upper respiratory tract infection [Unknown]
  - Febrile neutropenia [Unknown]
  - Anaemia [Unknown]
  - Pneumonia [Unknown]
  - Fatigue [Unknown]
  - Neuropathy peripheral [Unknown]
  - Constipation [Unknown]
  - Insomnia [Unknown]
  - Plasma cell myeloma [Unknown]
  - Nausea [Unknown]
  - Vomiting [Unknown]
  - Diarrhoea [Unknown]
  - Rash [Unknown]
  - Pyrexia [Unknown]
  - Arthralgia [Unknown]
  - Oedema peripheral [Unknown]
  - Headache [Unknown]
  - Dizziness [Unknown]
  - Back pain [Unknown]
  - Tremor [Unknown]
  - Decreased appetite [Unknown]
  - Dyspnoea [Unknown]
  - Muscle spasms [Unknown]
